FAERS Safety Report 13739071 (Version 1)
Quarter: 2017Q3

REPORT INFORMATION
  Report Type: Spontaneous
  Country: US (occurrence: US)
  Receive Date: 20170710
  Receipt Date: 20170710
  Transmission Date: 20171127
  Serious: Yes (Hospitalization, Other)
  Sender: FDA-Public Use
  Company Number: US-SAOL THERAPEUTICS-2017SAO00642

PATIENT
  Age: 20 Year
  Sex: Male
  Weight: 46.98 kg

DRUGS (5)
  1. BACLOFEN. [Suspect]
     Active Substance: BACLOFEN
     Indication: BALLISMUS
  2. BACLOFEN. [Suspect]
     Active Substance: BACLOFEN
     Indication: CHOREA
  3. BACLOFEN. [Suspect]
     Active Substance: BACLOFEN
     Indication: DYSTONIA
  4. VARIED MEDICATIONS (UNSPECIFIED) [Concomitant]
  5. BACLOFEN. [Suspect]
     Active Substance: BACLOFEN
     Indication: MUSCLE SPASTICITY
     Dosage: 147.2 ?G, \DAY
     Route: 037
     Dates: start: 2008, end: 20160822

REACTIONS (3)
  - Wound dehiscence [Recovered/Resolved]
  - Cerebrospinal fluid leakage [Recovered/Resolved]
  - Implant site infection [Recovered/Resolved]

NARRATIVE: CASE EVENT DATE: 20150602
